FAERS Safety Report 12483448 (Version 2)
Quarter: 2016Q3

REPORT INFORMATION
  Report Type: Spontaneous
  Country: US (occurrence: US)
  Receive Date: 20160621
  Receipt Date: 20160719
  Transmission Date: 20161109
  Serious: No
  Sender: FDA-Public Use
  Company Number: US-ASTRAZENECA-2016SE58663

PATIENT
  Sex: Male
  Weight: 79.4 kg

DRUGS (1)
  1. SYMBICORT [Suspect]
     Active Substance: BUDESONIDE\FORMOTEROL FUMARATE DIHYDRATE
     Dosage: 160 MCG 2 PUFFS TWICE DAILY
     Route: 055

REACTIONS (3)
  - Device malfunction [Unknown]
  - Intentional device misuse [Recovering/Resolving]
  - Dyspnoea [Recovering/Resolving]
